FAERS Safety Report 7659164-9 (Version None)
Quarter: 2011Q3

REPORT INFORMATION
  Report Type: 
  Country: None (occurrence: None)
  Receive Date: 20110805
  Receipt Date: 20110728
  Transmission Date: 20111222
  Serious: Yes (Hospitalization)
  Sender: FDA-Public Use
  Company Number: GB-GLAXOSMITHKLINE-B0736983A

PATIENT
  Sex: Male

DRUGS (6)
  1. DILTIAZEM [Concomitant]
     Dates: start: 20030101
  2. CHLORAMBUCIL [Suspect]
     Indication: CHRONIC LYMPHOCYTIC LEUKAEMIA
     Dosage: 18MG PER DAY
     Route: 048
     Dates: start: 20090113
  3. METFORMIN HCL [Concomitant]
     Dates: start: 20070501
  4. ASPIRIN [Concomitant]
     Dates: start: 20030101
  5. MABTHERA [Suspect]
     Indication: CHRONIC LYMPHOCYTIC LEUKAEMIA
     Dosage: 920MG MONTHLY
     Route: 042
     Dates: start: 20090113, end: 20090610
  6. SIMVASTATIN [Concomitant]
     Dates: start: 20030101

REACTIONS (1)
  - HAEMOLYTIC ANAEMIA [None]
